FAERS Safety Report 8856673 (Version 1)
Quarter: 2012Q4

REPORT INFORMATION
  Report Type: 
  Country: US (occurrence: US)
  Receive Date: 20121023
  Receipt Date: 20121023
  Transmission Date: 20130627
  Serious: No
  Sender: FDA-Public Use
  Company Number: US-AMGEN-USASP2012056420

PATIENT
  Age: 56 Year
  Sex: Male
  Weight: 95.24 kg

DRUGS (7)
  1. ENBREL [Suspect]
     Indication: PRODUCT USED FOR UNKNOWN INDICATION
     Dosage: 50 mg, qwk
     Route: 058
  2. DIOVAN [Concomitant]
     Dosage: 160 mg, UNK
  3. LIPITOR [Concomitant]
     Dosage: 10 mg, UNK
  4. FLONASE [Concomitant]
     Dosage: 0.05 %, UNK
  5. TRAMADOL HCL [Concomitant]
     Dosage: 50 mg, UNK
  6. HYDROCHLORIC ACID [Concomitant]
     Dosage: 25 mg, UNK
  7. PRILOSEC                           /00661201/ [Concomitant]
     Dosage: 10 mg, UNK

REACTIONS (3)
  - Limb operation [Unknown]
  - Gastric infection [Unknown]
  - Weight decreased [Unknown]
